FAERS Safety Report 4636607-6 (Version None)
Quarter: 2005Q2

REPORT INFORMATION
  Report Type: 
  Country: None (occurrence: None)
  Receive Date: 20050328
  Receipt Date: 20041213
  Transmission Date: 20051028
  Serious: No
  Sender: FDA-Public Use
  Company Number: USA041285728

PATIENT
  Age: 6 Year
  Sex: Female
  Weight: 17 kg

DRUGS (2)
  1. STRATTERA [Suspect]
     Dosage: 40 MG/1 DAY
     Dates: start: 20041001
  2. ASPIRIN [Concomitant]

REACTIONS (5)
  - ABDOMINAL PAIN UPPER [None]
  - DECREASED APPETITE [None]
  - HEADACHE [None]
  - PRESCRIBED OVERDOSE [None]
  - RASH [None]
